FAERS Safety Report 9203554 (Version 1)
Quarter: 2013Q2

REPORT INFORMATION
  Report Type: Spontaneous
  Country: EC (occurrence: EC)
  Receive Date: 20130402
  Receipt Date: 20130402
  Transmission Date: 20140414
  Serious: Yes (Hospitalization)
  Sender: FDA-Public Use
  Company Number: PHHY2013EC031655

PATIENT
  Age: 86 Year
  Sex: Female

DRUGS (2)
  1. DIOVAN [Suspect]
     Indication: HYPERTENSION
     Dosage: 320 MG
     Route: 048
     Dates: start: 201206, end: 201211
  2. DIOVAN [Suspect]
     Dosage: 160 MG
     Route: 048
     Dates: start: 201211

REACTIONS (1)
  - Cerebrovascular accident [Unknown]
